FAERS Safety Report 19939513 (Version 1)
Quarter: 2021Q4

REPORT INFORMATION
  Report Type: Spontaneous
  Country: CN (occurrence: CN)
  Receive Date: 20211011
  Receipt Date: 20211011
  Transmission Date: 20220303
  Serious: Yes (Life-Threatening)
  Sender: FDA-Public Use
  Company Number: CN-BAXTER-2021BAX027168

PATIENT
  Age: 48 Year
  Sex: Female
  Weight: 58 kg

DRUGS (9)
  1. CYCLOPHOSPHAMIDE [Suspect]
     Active Substance: CYCLOPHOSPHAMIDE
     Indication: Breast cancer female
     Dosage: CYCLOPHOSPHAMIDE FOR INJECTION+ 0.9% SODIUM CHLORIDE INJECTION , FIRST, SECOND CHEMOTHERAPY
     Route: 065
  2. CYCLOPHOSPHAMIDE [Suspect]
     Active Substance: CYCLOPHOSPHAMIDE
     Dosage: CYCLOPHOSPHAMIDE FOR INJECTION 1G + 0.9% SODIUM CHLORIDE INJECTION 100ML, THIRD CYCLE
     Route: 050
     Dates: start: 20200530, end: 20200530
  3. SODIUM CHLORIDE [Suspect]
     Active Substance: SODIUM CHLORIDE
     Indication: Medication dilution
     Dosage: CYCLOPHOSPHAMIDE FOR INJECTION+ 0.9% SODIUM CHLORIDE INJECTION , FIRST, SECOND CHEMOTHERAPY
     Route: 065
  4. SODIUM CHLORIDE [Suspect]
     Active Substance: SODIUM CHLORIDE
     Dosage: CYCLOPHOSPHAMIDE FOR INJECTION 1G + 0.9% SODIUM CHLORIDE INJECTION 100ML, THIRD CYCLE
     Route: 050
     Dates: start: 20200530, end: 20200530
  5. DEXTROSE [Suspect]
     Active Substance: DEXTROSE
     Indication: Medication dilution
     Dosage: DOXORUBICIN HYDROCHLORIDE LIPOSOME INJECTION + 5% GLUCOSE INJECTION, FIRST, SECOND CHEMOTHERAPY
  6. DEXTROSE [Suspect]
     Active Substance: DEXTROSE
     Dosage: DOXORUBICIN HYDROCHLORIDE LIPOSOME INJECTION 40 MG + 5% GLUCOSE INJECTION 250ML, 2ND CHEMOTHERAPY
     Route: 050
  7. DEXTROSE [Suspect]
     Active Substance: DEXTROSE
     Dosage: DOXORUBICIN HYDROCHLORIDE LIPOSOME INJECTION 40 MG + 5% GLUCOSE INJECTION 250ML
     Route: 050
     Dates: start: 20200530, end: 20200530
  8. DOXORUBICIN HYDROCHLORIDE [Suspect]
     Active Substance: DOXORUBICIN HYDROCHLORIDE
     Indication: Breast cancer female
     Dosage: DOXORUBICIN HYDROCHLORIDE LIPOSOME INJECTION + 5% GLUCOSE INJECTION, FIRST, SECOND CHEMOTHERAPY
     Route: 065
  9. DOXORUBICIN HYDROCHLORIDE [Suspect]
     Active Substance: DOXORUBICIN HYDROCHLORIDE
     Dosage: DOXORUBICIN HYDROCHLORIDE LIPOSOME INJECTION 40 MG + 5% GLUCOSE INJECTION 250ML, THIRD CYCLE
     Route: 050
     Dates: start: 20200530, end: 20200530

REACTIONS (1)
  - Myelosuppression [Recovering/Resolving]

NARRATIVE: CASE EVENT DATE: 20200531
